FAERS Safety Report 22259157 (Version 1)
Quarter: 2023Q2

REPORT INFORMATION
  Report Type: Spontaneous
  Country: JP (occurrence: JP)
  Receive Date: 20230427
  Receipt Date: 20230427
  Transmission Date: 20230722
  Serious: Yes (Other)
  Sender: FDA-Public Use
  Company Number: JP-PFIZER INC-202300167162

PATIENT
  Age: 12 Year
  Sex: Male
  Weight: 50 kg

DRUGS (4)
  1. METHOTREXATE SODIUM [Suspect]
     Active Substance: METHOTREXATE SODIUM
     Indication: Acute lymphocytic leukaemia
     Dosage: 5 G/M2
  2. CYTARABINE [Concomitant]
     Active Substance: CYTARABINE
  3. PREDNISOLONE [Concomitant]
     Active Substance: PREDNISOLONE
  4. MERCAPTOPURINE [Concomitant]
     Active Substance: MERCAPTOPURINE

REACTIONS (7)
  - Neutropenia [Unknown]
  - Drug clearance decreased [Recovered/Resolved]
  - Renal impairment [Recovered/Resolved]
  - Hypoaesthesia [Unknown]
  - Malaise [Unknown]
  - Pyrexia [Unknown]
  - Diarrhoea [Unknown]
